FAERS Safety Report 21021249 (Version 1)
Quarter: 2022Q2

REPORT INFORMATION
  Report Type: Spontaneous
  Country: PT (occurrence: PT)
  Receive Date: 20220629
  Receipt Date: 20220629
  Transmission Date: 20220721
  Serious: Yes (Hospitalization)
  Sender: FDA-Public Use
  Company Number: PT-JNJFOC-20220653441

PATIENT
  Sex: Male

DRUGS (2)
  1. ERLEADA [Suspect]
     Active Substance: APALUTAMIDE
     Indication: Hormone-refractory prostate cancer
     Route: 048
     Dates: start: 202203
  2. TRIPTORELIN [Suspect]
     Active Substance: TRIPTORELIN
     Indication: Hormone-refractory prostate cancer
     Dosage: 6/6 M
     Route: 065

REACTIONS (1)
  - Hypersensitivity myocarditis [Unknown]

NARRATIVE: CASE EVENT DATE: 20220501
